FAERS Safety Report 25425511 (Version 1)
Quarter: 2025Q2

REPORT INFORMATION
  Report Type: Spontaneous
  Country: IE (occurrence: IE)
  Receive Date: 20250611
  Receipt Date: 20250611
  Transmission Date: 20250717
  Serious: Yes (Other)
  Sender: JOHNSON AND JOHNSON
  Company Number: None

PATIENT
  Sex: Female

DRUGS (4)
  1. TOPIRAMATE [Suspect]
     Active Substance: TOPIRAMATE
     Indication: Epilepsy
     Route: 048
     Dates: start: 2021
  2. TOPIRAMATE [Suspect]
     Active Substance: TOPIRAMATE
     Dosage: INCREMENTS EVERY 2 WEEKS TO 100MG BD MAINTENANCE DOSE
     Dates: start: 2021
  3. TOPIRAMATE [Suspect]
     Active Substance: TOPIRAMATE
     Dosage: INCREMENTS EVERY 2 WEEKS TO 100MG BD MAINTENANCE DOSE
     Dates: start: 2021
  4. LAMOTRIGINE [Suspect]
     Active Substance: LAMOTRIGINE
     Indication: Epilepsy
     Dates: end: 2020

REACTIONS (1)
  - Maternal exposure during pregnancy [Unknown]
